FAERS Safety Report 5000799-X (Version None)
Quarter: 2006Q2

REPORT INFORMATION
  Report Type: 
  Country: None (occurrence: None)
  Receive Date: 20060512
  Receipt Date: 20051017
  Transmission Date: 20061013
  Serious: Yes (Hospitalization, Disabling)
  Sender: FDA-Public Use
  Company Number: US-MERCK-0510USA07630

PATIENT
  Age: 68 Year
  Sex: Female
  Weight: 109 kg

DRUGS (16)
  1. VIOXX [Suspect]
     Indication: ARTHRITIS
     Route: 048
     Dates: start: 19990101, end: 20020201
  2. HYDRODIURIL [Concomitant]
     Route: 065
  3. LASIX [Concomitant]
     Route: 065
  4. DEMADEX [Concomitant]
     Route: 065
     Dates: end: 20010410
  5. ASPIRIN [Concomitant]
     Route: 065
  6. PRINIVIL [Concomitant]
     Route: 065
     Dates: end: 20020531
  7. K-DUR 10 [Concomitant]
     Route: 065
  8. LIPITOR [Concomitant]
     Route: 065
     Dates: end: 20021207
  9. DICYCLOMINE HYDROCHLORIDE [Concomitant]
     Route: 065
  10. PRILOSEC [Concomitant]
     Route: 065
  11. MEPERIDINE HYDROCHLORIDE [Concomitant]
     Route: 065
     Dates: start: 20010101
  12. CELEBREX [Concomitant]
     Route: 065
     Dates: start: 20010410, end: 20011130
  13. DURAGESIC-100 [Concomitant]
     Route: 065
     Dates: start: 20020131, end: 20020924
  14. INDERAL [Concomitant]
     Route: 065
  15. TOPROL-XL [Concomitant]
     Route: 065
     Dates: start: 20011008
  16. WARFARIN [Concomitant]
     Route: 065

REACTIONS (2)
  - ARTHROPATHY [None]
  - CEREBROVASCULAR ACCIDENT [None]
